FAERS Safety Report 9819414 (Version 2)
Quarter: 2014Q1

REPORT INFORMATION
  Report Type: Spontaneous
  Country: FR (occurrence: None)
  Receive Date: 20140113
  Receipt Date: 20140311
  Transmission Date: 20141002
  Serious: Yes (Other)
  Sender: FDA-Public Use
  Company Number: 2013000387

PATIENT
  Age: 47 Year
  Sex: Female

DRUGS (1)
  1. ACEON [Suspect]
     Indication: HYPERTENSION
     Route: 048
     Dates: start: 2009, end: 2011

REACTIONS (7)
  - Tendon pain [None]
  - Joint swelling [None]
  - Dyspnoea [None]
  - Gait disturbance [None]
  - Morton^s neuralgia [None]
  - Gait disturbance [None]
  - Blood pressure increased [None]
